FAERS Safety Report 12649858 (Version 1)
Quarter: 2016Q3

REPORT INFORMATION
  Report Type: Spontaneous
  Country: US (occurrence: US)
  Receive Date: 20160812
  Receipt Date: 20160812
  Transmission Date: 20161109
  Serious: No
  Sender: FDA-Public Use
  Company Number: US-SHIRE-US201610105

PATIENT
  Age: 15 Year
  Sex: Male
  Weight: 25.37 kg

DRUGS (1)
  1. ELAPRASE [Suspect]
     Active Substance: IDURSULFASE
     Indication: MUCOPOLYSACCHARIDOSIS II
     Dosage: 12 MG, UNKNOWN
     Route: 041
     Dates: start: 2011

REACTIONS (3)
  - Catheter site warmth [Unknown]
  - Catheter site erythema [Unknown]
  - Catheter site swelling [Unknown]

NARRATIVE: CASE EVENT DATE: 201608
